FAERS Safety Report 4482287-2 (Version None)
Quarter: 2004Q4

REPORT INFORMATION
  Report Type: 
  Country: None (occurrence: None)
  Receive Date: 20041020
  Receipt Date: 20041006
  Transmission Date: 20050328
  Serious: Yes (Death, Other)
  Sender: FDA-Public Use
  Company Number: USA041080471

PATIENT
  Age: 27 Year
  Sex: Male

DRUGS (4)
  1. ZYPREXA [Suspect]
  2. KLONOPIN [Concomitant]
  3. BUSPAR [Concomitant]
  4. NEURONTIN (GABAPENTIN  PFIZER) [Concomitant]

REACTIONS (6)
  - ASTHENIA [None]
  - FEELING ABNORMAL [None]
  - PRESCRIBED OVERDOSE [None]
  - TONGUE DISORDER [None]
  - TREMOR [None]
  - WEIGHT INCREASED [None]
